FAERS Safety Report 4368999-X (Version None)
Quarter: 2004Q2

REPORT INFORMATION
  Report Type: 
  Country: None (occurrence: None)
  Receive Date: 20040525
  Receipt Date: 20040511
  Transmission Date: 20050107
  Serious: Yes (Hospitalization)
  Sender: FDA-Public Use
  Company Number: GB-JNJFOC-20040501887

PATIENT
  Age: 57 Year
  Sex: Female

DRUGS (8)
  1. REMICADE [Suspect]
     Indication: RHEUMATOID ARTHRITIS
     Dosage: 180 MG, INTRAVENOUS
     Route: 042
     Dates: start: 20031110
  2. METHOTREXATE [Concomitant]
  3. PREDNISOLONE [Concomitant]
  4. ARCOXIA (ALL OTHER THERAPEUTIC PRODUCTS) [Concomitant]
  5. FOLIC ACID [Concomitant]
  6. FOSAMAX [Concomitant]
  7. CALCIUM (CALCIUM) [Concomitant]
  8. HRT (ANDROGENS ANDFEMALE SEX HORMONES IN COMB) [Concomitant]

REACTIONS (2)
  - CALCULUS BLADDER [None]
  - RENAL COLIC [None]
